FAERS Safety Report 4923836-7 (Version None)
Quarter: 2006Q1

REPORT INFORMATION
  Report Type: 
  Country: None (occurrence: None)
  Receive Date: 20060224
  Receipt Date: 20060224
  Transmission Date: 20060701
  Serious: Yes (Other)
  Sender: FDA-Public Use
  Company Number: None

PATIENT
  Sex: Female
  Weight: 99.7913 kg

DRUGS (8)
  1. LIPITOR [Suspect]
     Indication: BLOOD CHOLESTEROL INCREASED
     Dosage: 20 MG 1X PO
     Route: 048
     Dates: start: 20050112, end: 20050727
  2. LIPITOR [Suspect]
     Indication: BLOOD TRIGLYCERIDES INCREASED
     Dosage: 20 MG 1X PO
     Route: 048
     Dates: start: 20050112, end: 20050727
  3. LIPITOR [Suspect]
     Indication: HIGH DENSITY LIPOPROTEIN DECREASED
     Dosage: 20 MG 1X PO
     Route: 048
     Dates: start: 20050112, end: 20050727
  4. LIPITOR [Suspect]
     Indication: LOW DENSITY LIPOPROTEIN INCREASED
     Dosage: 20 MG 1X PO
     Route: 048
     Dates: start: 20050112, end: 20050727
  5. LIPITOR [Suspect]
     Indication: BLOOD CHOLESTEROL INCREASED
     Dosage: 20 MG 1X PO
     Route: 048
     Dates: start: 20050727, end: 20060222
  6. LIPITOR [Suspect]
     Indication: BLOOD TRIGLYCERIDES INCREASED
     Dosage: 20 MG 1X PO
     Route: 048
     Dates: start: 20050727, end: 20060222
  7. LIPITOR [Suspect]
     Indication: HIGH DENSITY LIPOPROTEIN DECREASED
     Dosage: 20 MG 1X PO
     Route: 048
     Dates: start: 20050727, end: 20060222
  8. LIPITOR [Suspect]
     Indication: LOW DENSITY LIPOPROTEIN INCREASED
     Dosage: 20 MG 1X PO
     Route: 048
     Dates: start: 20050727, end: 20060222

REACTIONS (7)
  - AMNESIA [None]
  - APATHY [None]
  - APHASIA [None]
  - ASTHENIA [None]
  - DISTURBANCE IN ATTENTION [None]
  - MENTAL IMPAIRMENT [None]
  - THINKING ABNORMAL [None]
